FAERS Safety Report 8610210-5 (Version None)
Quarter: 2012Q3

REPORT INFORMATION
  Report Type: 
  Country: None (occurrence: None)
  Receive Date: 20120822
  Receipt Date: 20120720
  Transmission Date: 20120928
  Serious: Yes (Hospitalization, Other)
  Sender: FDA-Public Use
  Company Number: US-009507513-1202USA00036

PATIENT

DRUGS (7)
  1. FOSAMAX [Suspect]
     Dosage: 10 MG, QD
     Route: 048
     Dates: start: 20020123, end: 20020101
  2. FOSAMAX [Suspect]
     Dosage: 10 MG, QOD
     Route: 048
     Dates: start: 20010924
  3. FOSAMAX [Suspect]
     Dosage: 70 MG, QW
     Route: 048
     Dates: start: 20010924, end: 20020122
  4. FOSAMAX [Suspect]
     Indication: OSTEOPOROSIS
     Dosage: 10 MG, QD
     Route: 048
     Dates: start: 19960223, end: 20010923
  5. FOSAMAX [Suspect]
     Dosage: UNK
     Route: 048
     Dates: end: 20100901
  6. FOSAMAX [Suspect]
     Dosage: 70 MG, QW
     Route: 048
     Dates: start: 20020101, end: 20100901
  7. CALTRATE (CALCIUM CARBONATE (+) CHOLECALCIFEROL) [Concomitant]
     Dosage: UNK
     Dates: start: 19960101

REACTIONS (36)
  - SCAR [None]
  - RHINITIS ALLERGIC [None]
  - VARICOSE VEIN [None]
  - LOW TURNOVER OSTEOPATHY [None]
  - MYOFASCIAL PAIN SYNDROME [None]
  - COUGH [None]
  - CHEST PAIN [None]
  - TENOSYNOVITIS [None]
  - FIBROMYALGIA [None]
  - IRRITABLE BOWEL SYNDROME [None]
  - FEMUR FRACTURE [None]
  - ABDOMINAL PAIN [None]
  - VAGINAL INFECTION [None]
  - PAIN IN EXTREMITY [None]
  - URINARY TRACT INFECTION [None]
  - OSTEOARTHRITIS [None]
  - DEPRESSION [None]
  - ASTHMA [None]
  - ANTIPHOSPHOLIPID ANTIBODIES [None]
  - TOOTH DISORDER [None]
  - GASTROOESOPHAGEAL REFLUX DISEASE [None]
  - LACTOSE INTOLERANCE [None]
  - ARTHRALGIA [None]
  - VAGINAL HAEMORRHAGE [None]
  - URINARY INCONTINENCE [None]
  - MUSCULOSKELETAL CHEST PAIN [None]
  - MIGRAINE [None]
  - MITRAL VALVE PROLAPSE [None]
  - NAUSEA [None]
  - VOMITING [None]
  - TOOTH FRACTURE [None]
  - MYALGIA [None]
  - VIRAL INFECTION [None]
  - PNEUMONIA [None]
  - RAYNAUD'S PHENOMENON [None]
  - CANDIDIASIS [None]
